FAERS Safety Report 18229404 (Version 3)
Quarter: 2021Q1

REPORT INFORMATION
  Report Type: Spontaneous
  Country: US (occurrence: US)
  Receive Date: 20200903
  Receipt Date: 20210219
  Transmission Date: 20210419
  Serious: Yes (Death, Other)
  Sender: FDA-Public Use
  Company Number: US-ALLERGAN-2033386US

PATIENT
  Sex: Male
  Weight: 102.04 kg

DRUGS (42)
  1. DULOXETINE. [Suspect]
     Active Substance: DULOXETINE
     Indication: PRODUCT USED FOR UNKNOWN INDICATION
     Dosage: 60 MG, UNKNOWN FREQUENCY
  2. FENTANYL. [Suspect]
     Active Substance: FENTANYL
     Dosage: 50 MCG EVERY 5 MINUTES, PRN
     Route: 042
     Dates: start: 200812
  3. VICODIN ES [Suspect]
     Active Substance: ACETAMINOPHEN\HYDROCODONE BITARTRATE
     Indication: PAIN
     Dosage: 7.5/500, UNKNOWN FREQUENCY
     Route: 048
  4. PIROXICAM. [Concomitant]
     Active Substance: PIROXICAM
  5. NORCO [Suspect]
     Active Substance: ACETAMINOPHEN\HYDROCODONE BITARTRATE
     Indication: PAIN
     Dosage: UNK
  6. FENTANYL. [Suspect]
     Active Substance: FENTANYL
     Dosage: 50 AND 25 MCG/HR PATCH, UNKNOWN FREQUENCY
  7. VICODIN ES [Suspect]
     Active Substance: ACETAMINOPHEN\HYDROCODONE BITARTRATE
     Dosage: 7.5/500, 1 EVERY 4 HOURS OR 2 EVERY 6 HOURS, AS NEEDED
     Route: 048
     Dates: start: 200708
  8. PROPRANOLOL [Concomitant]
     Active Substance: PROPRANOLOL HYDROCHLORIDE
     Dosage: 1 DF, BID
  9. TEMAZEPAM. [Concomitant]
     Active Substance: TEMAZEPAM
  10. CYMBALTA [Suspect]
     Active Substance: DULOXETINE HYDROCHLORIDE
     Dosage: 30 MG CAPSULE, UNKNOWN FREQUENCY
  11. FENTANYL. [Suspect]
     Active Substance: FENTANYL
     Dosage: 50 MCG/HR PATCH, UNKNOWN FREQUENCY
  12. MS CONTIN [Suspect]
     Active Substance: MORPHINE SULFATE
     Indication: PRODUCT USED FOR UNKNOWN INDICATION
     Dosage: 600 MG, BID
     Route: 048
  13. NAPROXEN. [Suspect]
     Active Substance: NAPROXEN
     Indication: PRODUCT USED FOR UNKNOWN INDICATION
  14. QUETIAPINE FUMARATE. [Concomitant]
     Active Substance: QUETIAPINE FUMARATE
     Dosage: 25 MG, UNKNOWN FREQUENCY
  15. CEPHALEXIN. [Concomitant]
     Active Substance: CEPHALEXIN
  16. CLONAZEPAM. [Concomitant]
     Active Substance: CLONAZEPAM
  17. OXYCODONE/APAP [Concomitant]
     Active Substance: ACETAMINOPHEN\OXYCODONE HYDROCHLORIDE
  18. METHADONE HCL [Concomitant]
     Active Substance: METHADONE HYDROCHLORIDE
     Indication: PAIN
     Dosage: 1 TABLET EVERY 4 TO 6 HOURS IF NEEDED
     Route: 048
  19. BACLOFEN. [Concomitant]
     Active Substance: BACLOFEN
     Dosage: 2 DF, QD
     Route: 048
  20. FERROUS SULFATE. [Concomitant]
     Active Substance: FERROUS SULFATE
  21. OMEPRAZOLE. [Concomitant]
     Active Substance: OMEPRAZOLE
  22. ALCOHOL. [Suspect]
     Active Substance: ALCOHOL
     Indication: PRODUCT USED FOR UNKNOWN INDICATION
  23. CYMBALTA [Suspect]
     Active Substance: DULOXETINE HYDROCHLORIDE
     Indication: PRODUCT USED FOR UNKNOWN INDICATION
     Dosage: 60 MG CAPSULE, UNKNOWN FREQUENCY
  24. GABAPENTIN. [Suspect]
     Active Substance: GABAPENTIN
     Indication: PRODUCT USED FOR UNKNOWN INDICATION
     Dosage: 400 MG, UNKNOWN FREQUENCY
  25. MOTRIN [Concomitant]
     Active Substance: IBUPROFEN
     Dosage: 800 MG, TID
  26. ALPRAZOLAM. [Concomitant]
     Active Substance: ALPRAZOLAM
  27. RISPERIDONE. [Concomitant]
     Active Substance: RISPERIDONE
  28. MELOXICAM. [Concomitant]
     Active Substance: MELOXICAM
     Indication: PAIN
     Dosage: 1 DF, QD
     Route: 048
  29. DIVALPROEX [Concomitant]
     Active Substance: DIVALPROEX SODIUM
  30. HYDROCODONE BITARTRATE;ACETAMINOPHEN UNK [Suspect]
     Active Substance: ACETAMINOPHEN\HYDROCODONE BITARTRATE
     Indication: PAIN
     Dosage: 10/325, UNKNOWN FREQUENCY
  31. LEXAPRO [Suspect]
     Active Substance: ESCITALOPRAM OXALATE
     Indication: PRODUCT USED FOR UNKNOWN INDICATION
     Dosage: 10 MG, QD
  32. FENTANYL. [Suspect]
     Active Substance: FENTANYL
     Indication: PAIN
     Dosage: 25 MCG/HR PATCH, UNKNOWN FREQUENCY
  33. VICODIN [Suspect]
     Active Substance: ACETAMINOPHEN\HYDROCODONE BITARTRATE
     Indication: PAIN
     Dosage: 10/500, 5 TIMES DAILY
  34. SULFAMETOXAZOL/TRIMETOPRIM [Concomitant]
     Active Substance: SULFAMETHOXAZOLE\TRIMETHOPRIM
     Dosage: 1 DF, BID
     Dates: start: 20130109
  35. LISINOPRIL. [Concomitant]
     Active Substance: LISINOPRIL
     Dosage: 2 DF, QD
     Route: 048
  36. DIPHENHYDRAMINE. [Suspect]
     Active Substance: DIPHENHYDRAMINE
     Indication: PRODUCT USED FOR UNKNOWN INDICATION
     Dosage: UNK
  37. FENTANYL. [Suspect]
     Active Substance: FENTANYL
     Dosage: 75 MCG/HR PATCH, UNKNOWN FREQUENCY
  38. FENTANYL. [Suspect]
     Active Substance: FENTANYL
     Dosage: 50 MCG/HR PATCH, UNKNOWN FREQUENCY
  39. SEROQUEL [Concomitant]
     Active Substance: QUETIAPINE FUMARATE
     Dosage: 25 MG, UNKNOWN FREQUENCY
  40. ZOLPIDEM [Concomitant]
     Active Substance: ZOLPIDEM TARTRATE
  41. BUPROPION. [Concomitant]
     Active Substance: BUPROPION
     Dosage: 1 DF, QD
     Route: 048
  42. MORPHINE SULFATE UNK [Concomitant]
     Active Substance: MORPHINE SULFATE

REACTIONS (5)
  - Apathy [Unknown]
  - Dependence [Unknown]
  - Mental status changes [Unknown]
  - Toxicity to various agents [Fatal]
  - Loss of personal independence in daily activities [Unknown]
